FAERS Safety Report 20969139 (Version 1)
Quarter: 2022Q2

REPORT INFORMATION
  Report Type: Spontaneous
  Country: BR (occurrence: BR)
  Receive Date: 20220616
  Receipt Date: 20220616
  Transmission Date: 20220721
  Serious: Yes (Other)
  Sender: FDA-Public Use
  Company Number: BR-PFIZER INC-PV202200001028

PATIENT
  Age: 72 Year
  Sex: Male

DRUGS (2)
  1. SUTENT [Suspect]
     Active Substance: SUNITINIB MALATE
     Dosage: 50 MG, CYCLIC (DAILY, SCHEME 4/2 REST)
     Dates: start: 20220322
  2. SUTENT [Suspect]
     Active Substance: SUNITINIB MALATE
     Dosage: 50 MG, CYCLIC (DAILY, SCHEME 2/1 REST)

REACTIONS (8)
  - Illness [Unknown]
  - Swelling face [Unknown]
  - Eye swelling [Unknown]
  - Mouth swelling [Unknown]
  - Feeding disorder [Unknown]
  - Mouth injury [Unknown]
  - Genital injury [Unknown]
  - Product use issue [Unknown]
